FAERS Safety Report 13710048 (Version 1)
Quarter: 2017Q3

REPORT INFORMATION
  Report Type: Spontaneous
  Country: US (occurrence: US)
  Receive Date: 20170703
  Receipt Date: 20170703
  Transmission Date: 20171127
  Serious: No
  Sender: FDA-Public Use
  Company Number: US-TEVA-711960ACC

PATIENT
  Sex: Female
  Weight: 45.4 kg

DRUGS (1)
  1. LIDOCAINE TOPICAL 5% PATCH [Suspect]
     Active Substance: LIDOCAINE
     Indication: PAIN
     Route: 061
     Dates: start: 20160822

REACTIONS (4)
  - Burning sensation [Unknown]
  - Petechiae [Unknown]
  - Skin irritation [Unknown]
  - Headache [Unknown]
